FAERS Safety Report 7992533-6 (Version None)
Quarter: 2011Q4

REPORT INFORMATION
  Report Type: 
  Country: None (occurrence: None)
  Receive Date: 20111219
  Receipt Date: 20111003
  Transmission Date: 20120403
  Serious: No
  Sender: FDA-Public Use
  Company Number: US-ASTRAZENECA-2010SE28051

PATIENT
  Age: 81 Year
  Sex: Male
  Weight: 108.4 kg

DRUGS (22)
  1. ALLEGRA [Concomitant]
  2. VALIUM [Concomitant]
  3. VITAMIN D [Concomitant]
  4. CRESTOR [Suspect]
     Route: 048
     Dates: start: 20100528
  5. NIASPAN [Concomitant]
  6. ACETAMINOPHEN [Concomitant]
     Indication: DISCOMFORT
  7. CITRUCEL [Concomitant]
  8. LASIX [Concomitant]
  9. NEXIUM [Concomitant]
  10. PLAVIX [Concomitant]
  11. CRESTOR [Suspect]
     Route: 048
  12. ALLOPURINOL [Concomitant]
  13. ASPIRIN [Concomitant]
  14. INSPRA [Concomitant]
  15. IMDUR [Concomitant]
  16. ISOSORBIDE MONONITRATE [Concomitant]
  17. COREG CR [Concomitant]
  18. DIOVAN [Concomitant]
  19. RANEXA [Concomitant]
  20. FINASTERIDE [Concomitant]
  21. CRESTOR [Suspect]
     Route: 048
     Dates: start: 20100101, end: 20100501
  22. ZETIA [Concomitant]

REACTIONS (5)
  - BLOOD CHOLESTEROL INCREASED [None]
  - HYPERTENSION [None]
  - LOW DENSITY LIPOPROTEIN INCREASED [None]
  - HYPERLIPIDAEMIA [None]
  - CARDIAC DISORDER [None]
